FAERS Safety Report 8268754-4 (Version None)
Quarter: 2012Q2

REPORT INFORMATION
  Report Type: 
  Country: None (occurrence: None)
  Receive Date: 20120409
  Receipt Date: 20120409
  Transmission Date: 20120825
  Serious: No
  Sender: FDA-Public Use
  Company Number: None

PATIENT
  Age: 10 Year
  Sex: Male
  Weight: 53.977 kg

DRUGS (1)
  1. SINGULAIR [Suspect]
     Indication: ASTHMA
     Dosage: 1 PILL
     Dates: start: 20120201, end: 20120301

REACTIONS (10)
  - CRYING [None]
  - DISTURBANCE IN ATTENTION [None]
  - SLEEP DISORDER [None]
  - PERSONALITY CHANGE [None]
  - SCREAMING [None]
  - COUGH [None]
  - ANGER [None]
  - MOOD SWINGS [None]
  - NIGHTMARE [None]
  - EDUCATIONAL PROBLEM [None]
